FAERS Safety Report 10780142 (Version 1)
Quarter: 2015Q1

REPORT INFORMATION
  Report Type: Spontaneous
  Country: US (occurrence: None)
  Receive Date: 20150206
  Receipt Date: 20150206
  Transmission Date: 20150721
  Serious: No
  Sender: FDA-Public Use
  Company Number: None

PATIENT
  Age: 66 Year
  Sex: Female
  Weight: 62.6 kg

DRUGS (1)
  1. ALENDRONATE SODIUM 70MG [Suspect]
     Active Substance: ALENDRONATE SODIUM
     Indication: OSTEOPOROSIS
     Dosage: 1 TABLET, QD, ORAL
     Route: 048
     Dates: start: 20150109, end: 20150110

REACTIONS (2)
  - Bone pain [None]
  - Musculoskeletal discomfort [None]

NARRATIVE: CASE EVENT DATE: 20150109
